FAERS Safety Report 6885030-2 (Version None)
Quarter: 2010Q3

REPORT INFORMATION
  Report Type: 
  Country: None (occurrence: None)
  Receive Date: 20100729
  Receipt Date: 20071114
  Transmission Date: 20110219
  Serious: Yes (Death, Hospitalization)
  Sender: FDA-Public Use
  Company Number: US-PFIZER INC-2007088443

PATIENT
  Sex: Female
  Weight: 68 kg

DRUGS (1)
  1. CELEBREX [Suspect]
     Indication: ARTHRITIS
     Dates: start: 20021016, end: 20041231

REACTIONS (1)
  - ACUTE MYOCARDIAL INFARCTION [None]
